FAERS Safety Report 6299577-3 (Version None)
Quarter: 2009Q3

REPORT INFORMATION
  Report Type: 
  Country: None (occurrence: None)
  Receive Date: 20090805
  Receipt Date: 20090805
  Transmission Date: 20100115
  Serious: Yes (Other)
  Sender: FDA-Public Use
  Company Number: None

PATIENT
  Age: 19 Year
  Sex: Male
  Weight: 77.1115 kg

DRUGS (3)
  1. SUBOXONE [Suspect]
     Indication: DRUG DEPENDENCE
     Dosage: 4 MG ONCE A DAY SL
     Route: 060
     Dates: start: 20090428, end: 20090724
  2. SUBOXONE [Suspect]
     Indication: DRUG DEPENDENCE
     Dosage: 2 MG ONCE A DAY SL
     Route: 060
     Dates: start: 20090507, end: 20090724
  3. FLUOXETINE [Concomitant]

REACTIONS (4)
  - ALCOHOL USE [None]
  - DISCOMFORT [None]
  - EUPHORIC MOOD [None]
  - INCORRECT ROUTE OF DRUG ADMINISTRATION [None]
